FAERS Safety Report 4427377-5 (Version None)
Quarter: 2004Q3

REPORT INFORMATION
  Report Type: 
  Country: None (occurrence: None)
  Receive Date: 20040816
  Receipt Date: 20040816
  Transmission Date: 20050211
  Serious: Yes (Life-Threatening, Hospitalization)
  Sender: FDA-Public Use
  Company Number: None

PATIENT
  Age: 70 Year
  Sex: Female
  Weight: 99.7913 kg

DRUGS (10)
  1. CELEBREX [Suspect]
     Indication: OSTEOARTHRITIS
     Dosage: ONE QD TO BID
     Dates: start: 20020301
  2. ATENOLOL [Concomitant]
  3. FUROSEMIDE [Concomitant]
  4. HYZAAR [Concomitant]
  5. PRANDIN [Concomitant]
  6. GLUCOPHAGE [Concomitant]
  7. NORVASC [Concomitant]
  8. LANTUS [Concomitant]
  9. CRESTOR [Concomitant]
  10. PRILOSEC [Concomitant]

REACTIONS (2)
  - GASTRIC ULCER [None]
  - UPPER GASTROINTESTINAL HAEMORRHAGE [None]
